FAERS Safety Report 12423865 (Version 1)
Quarter: 2016Q2

REPORT INFORMATION
  Report Type: Report from Study
  Country: US (occurrence: US)
  Receive Date: 20160601
  Receipt Date: 20160601
  Transmission Date: 20160815
  Serious: Yes (Other)
  Sender: FDA-Public Use
  Company Number: US-EMD SERONO-E2B_80039794

PATIENT
  Sex: Female

DRUGS (3)
  1. CLARITINE [Concomitant]
     Active Substance: LORATADINE
     Indication: HYPERSENSITIVITY
  2. CLARITINE [Concomitant]
     Active Substance: LORATADINE
     Indication: ASTHMA
  3. REBIF [Suspect]
     Active Substance: INTERFERON BETA-1A
     Indication: PRODUCT USED FOR UNKNOWN INDICATION
     Route: 058
     Dates: start: 20121008

REACTIONS (5)
  - Anxiety [Not Recovered/Not Resolved]
  - Basedow^s disease [Recovering/Resolving]
  - Asthma [Unknown]
  - Pain in extremity [Not Recovered/Not Resolved]
  - Depression [Recovering/Resolving]

NARRATIVE: CASE EVENT DATE: 2015
